FAERS Safety Report 6204659-8 (Version None)
Quarter: 2009Q2

REPORT INFORMATION
  Report Type: 
  Country: None (occurrence: None)
  Receive Date: 20090527
  Receipt Date: 20090126
  Transmission Date: 20091009
  Serious: Yes (Death, Life-Threatening, Hospitalization)
  Sender: FDA-Public Use
  Company Number: PT-PFIZER INC-2008050939

PATIENT
  Age: 75 Year

DRUGS (9)
  1. BLINDED *PLACEBO [Suspect]
     Dosage: UNK
     Dates: start: 20071001, end: 20080612
  2. BLINDED EPLERENONE [Suspect]
     Dosage: UNK
     Dates: start: 20071001, end: 20080612
  3. WARFARIN SODIUM [Concomitant]
  4. ALLOPURINOL [Concomitant]
     Route: 048
  5. PERINDOPRIL ERBUMINE [Concomitant]
     Route: 048
  6. NITROGLYCERIN [Concomitant]
     Route: 062
  7. CARVEDILOL [Concomitant]
     Route: 048
  8. LASIX [Concomitant]
     Route: 048
  9. LEXOTAN [Concomitant]
     Route: 048

REACTIONS (1)
  - PANCREATOLITHIASIS [None]
